FAERS Safety Report 17139324 (Version 1)
Quarter: 2019Q4

REPORT INFORMATION
  Report Type: Spontaneous
  Country: DK (occurrence: DK)
  Receive Date: 20191211
  Receipt Date: 20191211
  Transmission Date: 20200122
  Serious: Yes (Other)
  Sender: FDA-Public Use
  Company Number: DK-SAMSUNG BIOEPIS-SB-2019-36219

PATIENT
  Age: 5 Year
  Sex: Female

DRUGS (6)
  1. METHOTREXATE SODIUM. [Suspect]
     Active Substance: METHOTREXATE SODIUM
     Indication: PUSTULAR PSORIASIS
     Dosage: UNKNOWN
     Route: 065
  2. ANAKINRA [Suspect]
     Active Substance: ANAKINRA
     Route: 065
  3. ANAKINRA [Suspect]
     Active Substance: ANAKINRA
     Indication: PUSTULAR PSORIASIS
     Route: 065
  4. ETANERCEPT [Suspect]
     Active Substance: ETANERCEPT
     Indication: PUSTULAR PSORIASIS
     Dosage: UNKNOWN
     Route: 065
  5. INFLIXIMAB [Suspect]
     Active Substance: INFLIXIMAB
     Dosage: 6.5 MG/KG/DOSE GIVEN THREE TIMES WITH 2 WEEKS INTERVAL AND THEREAFTER EVERY 4 WEEKS
     Route: 065
  6. INFLIXIMAB [Suspect]
     Active Substance: INFLIXIMAB
     Indication: PUSTULAR PSORIASIS
     Dosage: 6.5 MG/KG/DOSE GIVEN THREE TIMES WITH 2 WEEKS INTERVAL AND THEREAFTER EVERY 4 WEEKS
     Route: 065

REACTIONS (6)
  - Anaphylactoid reaction [Unknown]
  - Condition aggravated [Unknown]
  - Therapy non-responder [Unknown]
  - Product use in unapproved indication [Unknown]
  - Skin lesion [Unknown]
  - Product use issue [Unknown]
